FAERS Safety Report 13896059 (Version 1)
Quarter: 2017Q3

REPORT INFORMATION
  Report Type: Spontaneous
  Country: CN (occurrence: CN)
  Receive Date: 20170823
  Receipt Date: 20170823
  Transmission Date: 20171127
  Serious: Yes (Life-Threatening)
  Sender: FDA-Public Use
  Company Number: CN-ASTRAZENECA-2017SE78208

PATIENT
  Age: 12 Year

DRUGS (3)
  1. BRICANYL [Suspect]
     Active Substance: TERBUTALINE SULFATE
     Indication: COUGH
     Dosage: ONE VIAL
     Route: 055
     Dates: start: 20170623
  2. IPRATROPIUM BROMIDE. [Concomitant]
     Active Substance: IPRATROPIUM BROMIDE
     Indication: COUGH
     Dates: start: 20170623
  3. PULMICORT RESPULES [Suspect]
     Active Substance: BUDESONIDE
     Indication: COUGH
     Route: 055
     Dates: start: 20170623

REACTIONS (6)
  - Heart rate increased [Recovered/Resolved]
  - Dyspnoea [Recovered/Resolved]
  - Off label use [Unknown]
  - Body temperature decreased [Recovered/Resolved]
  - Cyanosis [Recovered/Resolved]
  - Product use in unapproved indication [Unknown]

NARRATIVE: CASE EVENT DATE: 20170623
